FAERS Safety Report 21973832 (Version 1)
Quarter: 2023Q1

REPORT INFORMATION
  Report Type: Spontaneous
  Country: CN (occurrence: CN)
  Receive Date: 20230209
  Receipt Date: 20230209
  Transmission Date: 20230417
  Serious: Yes (Other)
  Sender: FDA-Public Use
  Company Number: CN-PFIZER INC-PV202300023874

PATIENT
  Age: 81 Year
  Sex: Male

DRUGS (3)
  1. NIRMATRELVIR\RITONAVIR [Suspect]
     Active Substance: NIRMATRELVIR\RITONAVIR
     Indication: Coronavirus infection
     Dosage: 2 DF, 2X/DAY
     Route: 048
     Dates: start: 20230106, end: 20230111
  2. DEXAMETHASONE SODIUM PHOSPHATE [Suspect]
     Active Substance: DEXAMETHASONE SODIUM PHOSPHATE
     Indication: Coronavirus infection
     Dosage: 10 MG, 1X/DAY
     Route: 042
     Dates: start: 20230112, end: 20230117
  3. DEXAMETHASONE SODIUM PHOSPHATE [Suspect]
     Active Substance: DEXAMETHASONE SODIUM PHOSPHATE
     Dosage: 5 MG, 1X/DAY
     Route: 042
     Dates: start: 20230118, end: 20230125

REACTIONS (2)
  - Blood glucose abnormal [Unknown]
  - Dry mouth [Unknown]

NARRATIVE: CASE EVENT DATE: 20230129
